FAERS Safety Report 22142133 (Version 2)
Quarter: 2023Q1

REPORT INFORMATION
  Report Type: Report from Study
  Country: GB (occurrence: GB)
  Receive Date: 20230327
  Receipt Date: 20230331
  Transmission Date: 20230417
  Serious: Yes (Other)
  Sender: FDA-Public Use
  Company Number: GB-002147023-NVSC2023GB064871

PATIENT
  Sex: Male

DRUGS (2)
  1. OMNITROPE [Suspect]
     Active Substance: SOMATROPIN
     Indication: Growth hormone deficiency
     Dosage: 0.5 G (BD MICROFI 5MM P)
     Route: 065
  2. OMNITROPE [Suspect]
     Active Substance: SOMATROPIN
     Dosage: 0.5 MG
     Route: 058
     Dates: start: 20230320

REACTIONS (5)
  - Intentional self-injury [Unknown]
  - Poor quality sleep [Unknown]
  - Illness [Unknown]
  - Screaming [Unknown]
  - Abnormal behaviour [Unknown]
